FAERS Safety Report 15801264 (Version 1)
Quarter: 2019Q1

REPORT INFORMATION
  Report Type: Report from Study
  Country: None (occurrence: BR)
  Receive Date: 20190109
  Receipt Date: 20190109
  Transmission Date: 20190417
  Serious: Yes (Other)
  Sender: FDA-Public Use
  Company Number: BR-ABBVIE-19K-020-2617205-00

PATIENT
  Sex: Male

DRUGS (1)
  1. HUMIRA [Suspect]
     Active Substance: ADALIMUMAB
     Indication: CROHN^S DISEASE
     Route: 058
     Dates: start: 20100301, end: 201812

REACTIONS (5)
  - Malaise [Unknown]
  - General physical health deterioration [Unknown]
  - Visual impairment [Unknown]
  - Intestinal haemorrhage [Not Recovered/Not Resolved]
  - Loss of personal independence in daily activities [Unknown]
